FAERS Safety Report 23503974 (Version 2)
Quarter: 2024Q1

REPORT INFORMATION
  Report Type: Spontaneous
  Country: EG (occurrence: EG)
  Receive Date: 20240209
  Receipt Date: 20240215
  Transmission Date: 20240409
  Serious: Yes (Other)
  Sender: FDA-Public Use
  Company Number: EG-NOVOPROD-1170544

PATIENT
  Age: 778 Month
  Sex: Female
  Weight: 105 kg

DRUGS (8)
  1. INSULIN HUMAN [Suspect]
     Active Substance: INSULIN HUMAN
     Indication: Diabetes mellitus
     Dosage: 100 IU, QD (60U AT MORNING AND 40 U AT NIGHT)
     Route: 058
  2. LANOXIN [Concomitant]
     Active Substance: DIGOXIN
     Indication: Cardiac disorder
     Dosage: 1 ORAL TAB. /DAY BEFORE MEAL
     Route: 048
  3. WARFARIN SODIUM [Concomitant]
     Active Substance: WARFARIN SODIUM
     Indication: Anticoagulant therapy
     Dosage: 1 ORAL TAB. /DAY BEFORE MEAL.
     Route: 048
  4. NITROMACK [Concomitant]
     Indication: Cardiac disorder
     Dosage: 1 ORAL TAB. /DAY BEFORE MEAL.
     Route: 048
  5. NITROMACK [Concomitant]
     Indication: Angina pectoris
  6. NEUROTON [CITICOLINE SODIUM] [Concomitant]
     Indication: Nervous system disorder prophylaxis
     Dosage: 1 ORAL TAB /DAY BEFORE MEAL.
     Route: 048
  7. MEPAPHAGE [Concomitant]
     Indication: Diabetes mellitus
     Dosage: 1 ORAL TAB. /DAY BEFORE MEAL.
  8. FARCOPRIL [Concomitant]
     Indication: Hypertension
     Dosage: 1 ORAL TAB. /DAY BEFORE MEAL.
     Route: 048

REACTIONS (4)
  - Foot fracture [Recovered/Resolved]
  - Hyperglycaemia [Unknown]
  - Blood glucose increased [Unknown]
  - Pain in extremity [Not Recovered/Not Resolved]
